FAERS Safety Report 4852745-7 (Version None)
Quarter: 2005Q4

REPORT INFORMATION
  Report Type: 
  Country: None (occurrence: None)
  Receive Date: 20051125
  Receipt Date: 20050407
  Transmission Date: 20060501
  Serious: Yes (Other)
  Sender: FDA-Public Use
  Company Number: 2005054013

PATIENT
  Age: 52 Year
  Sex: Male
  Weight: 87.0906 kg

DRUGS (5)
  1. TIKOSYN [Suspect]
     Indication: ATRIAL FIBRILLATION
     Dosage: 1000 MCG (500 MCG, TWICE DAILY), ORAL
     Route: 048
     Dates: start: 20050321
  2. DILTIAZEM HYDROCHLORIDE [Concomitant]
  3. DIGITALIS [Concomitant]
  4. CARVEDILOL [Concomitant]
  5. WARFARIN SODIUM [Concomitant]

REACTIONS (1)
  - DRUG INEFFECTIVE [None]
